FAERS Safety Report 9070398 (Version 1)
Quarter: 2013Q1

REPORT INFORMATION
  Report Type: Report from Study
  Country: US (occurrence: US)
  Receive Date: 20130129
  Receipt Date: 20130129
  Transmission Date: 20140127
  Serious: No
  Sender: FDA-Public Use
  Company Number: US-ABBOTT-12P-163-0927096-00

PATIENT
  Age: 61 None
  Sex: Female
  Weight: 65.83 kg

DRUGS (18)
  1. HUMIRA 40 MG/0.8 ML PEN [Suspect]
     Indication: RHEUMATOID ARTHRITIS
     Route: 058
  2. METHOTREXATE [Concomitant]
     Indication: RHEUMATOID ARTHRITIS
  3. FOLIC ACID [Concomitant]
     Indication: VITAMIN SUPPLEMENTATION
  4. LIPITOR [Concomitant]
     Indication: BLOOD CHOLESTEROL INCREASED
  5. NEXIUM [Concomitant]
     Indication: GASTROOESOPHAGEAL REFLUX DISEASE
  6. FISH OIL [Concomitant]
     Indication: VITAMIN SUPPLEMENTATION
  7. PROMETRIUM [Concomitant]
     Indication: SLEEP DISORDER THERAPY
  8. VITAMIN D [Concomitant]
     Indication: VITAMIN SUPPLEMENTATION
  9. CLONAZEPAM [Concomitant]
     Indication: DEPRESSION
  10. CLONAZEPAM [Concomitant]
     Indication: ANXIETY
  11. ESTRADIOL [Concomitant]
     Indication: HORMONE REPLACEMENT THERAPY
  12. ALPRAZOLAM [Concomitant]
     Indication: DEPRESSION
  13. ALPRAZOLAM [Concomitant]
     Indication: ANXIETY
  14. SERTRALINE [Concomitant]
     Indication: DEPRESSION
  15. SERTRALINE [Concomitant]
     Indication: ANXIETY
  16. LISINOPRIL [Concomitant]
     Indication: HYPERTENSION
  17. MULTIVITAMIN [Concomitant]
     Indication: VITAMIN SUPPLEMENTATION
  18. CALCIUM W/COLECALCIFEROL/MAGNESIUM/ZINC [Concomitant]
     Indication: MINERAL SUPPLEMENTATION
     Dosage: COMBINATION SUPPLEMENT

REACTIONS (4)
  - Chest pain [Recovered/Resolved]
  - Flatulence [Recovered/Resolved]
  - Peripheral vascular disorder [Not Recovered/Not Resolved]
  - Ligament rupture [Not Recovered/Not Resolved]
